FAERS Safety Report 6453987-X (Version None)
Quarter: 2009Q4

REPORT INFORMATION
  Report Type: 
  Country: None (occurrence: None)
  Receive Date: 20091117
  Receipt Date: 20091104
  Transmission Date: 20100525
  Serious: Yes (Hospitalization)
  Sender: FDA-Public Use
  Company Number: 8054147

PATIENT
  Sex: Female
  Weight: 70 kg

DRUGS (3)
  1. KEPPRA [Suspect]
     Indication: CONVULSION
     Dosage: PO
     Route: 048
  2. KEPPRA [Suspect]
     Indication: CONVULSION
     Dosage: IV
     Route: 042
  3. VIMPAT [Suspect]
     Indication: CONVULSION
     Dosage: 200 MG; IV
     Route: 042
     Dates: start: 20091022, end: 20091023

REACTIONS (5)
  - BLOOD COUNT ABNORMAL [None]
  - CLOSTRIDIAL INFECTION [None]
  - PNEUMONIA [None]
  - STATUS EPILEPTICUS [None]
  - SWOLLEN TONGUE [None]
